FAERS Safety Report 5385761-X (Version None)
Quarter: 2007Q3

REPORT INFORMATION
  Report Type: 
  Country: None (occurrence: None)
  Receive Date: 20070712
  Receipt Date: 20070703
  Transmission Date: 20080115
  Serious: Yes (Hospitalization)
  Sender: FDA-Public Use
  Company Number: GB-PFIZER INC-2007055219

PATIENT
  Age: 70 Year
  Sex: Female

DRUGS (12)
  1. GABAPENTIN [Suspect]
     Indication: NEURALGIA
     Route: 048
     Dates: start: 20070602, end: 20070604
  2. ANASTROZOLE [Concomitant]
     Route: 048
  3. ATORVASTATIN [Concomitant]
     Route: 048
  4. BENDROFLUMETHIAZIDE [Concomitant]
     Route: 048
  5. CLODRONATE DISODIUM [Concomitant]
     Route: 048
  6. CARBAMAZEPINE [Concomitant]
     Route: 048
  7. CODEINE PHOSPHATE AND ACETAMINOPHEN [Concomitant]
     Route: 048
  8. CYCLIZINE [Concomitant]
     Route: 048
  9. DICLOFENAC [Concomitant]
  10. METOCLOPRAMIDE [Concomitant]
     Route: 048
  11. OMEPRAZOLE [Concomitant]
     Route: 048
  12. ORAMORPH SR [Concomitant]
     Route: 048

REACTIONS (2)
  - MUSCLE SPASMS [None]
  - NYSTAGMUS [None]
